FAERS Safety Report 4277375-X (Version None)
Quarter: 2004Q1

REPORT INFORMATION
  Report Type: 
  Country: None (occurrence: None)
  Receive Date: 20040121
  Receipt Date: 20040121
  Transmission Date: 20041129
  Serious: Yes (Hospitalization)
  Sender: FDA-Public Use
  Company Number: None

PATIENT
  Age: 79 Year
  Sex: Female

DRUGS (8)
  1. NAPROXEN [Suspect]
     Indication: PAIN
     Dosage: 500 MG BID ORAL
     Route: 048
     Dates: start: 20030101, end: 20030909
  2. ASPIRIN [Suspect]
     Indication: PROPHYLAXIS
     Dosage: 162MG DAILY ORAL
     Route: 048
     Dates: start: 20030101, end: 20030909
  3. ASPIRIN [Suspect]
     Indication: PROPHYLAXIS
     Dosage: 162MG DAILY ORAL
     Route: 048
     Dates: start: 20030101, end: 20030909
  4. TOLTERODINE [Concomitant]
  5. PAROXETINE [Concomitant]
  6. DILTIAZEM [Concomitant]
  7. DIAZEPAM [Concomitant]
  8. FUROSEMIDE [Concomitant]

REACTIONS (2)
  - GASTROINTESTINAL HAEMORRHAGE [None]
  - HAEMATEMESIS [None]
